FAERS Safety Report 7064966-6 (Version None)
Quarter: 2010Q4

REPORT INFORMATION
  Report Type: 
  Country: None (occurrence: None)
  Receive Date: 20101027
  Receipt Date: 19941214
  Transmission Date: 20110411
  Serious: Yes (Death, Life-Threatening, Disabling)
  Sender: FDA-Public Use
  Company Number: SE-ROCHE-940600108001

PATIENT
  Age: 41 Year
  Sex: Male

DRUGS (4)
  1. PRONAXEN [Suspect]
     Indication: PRODUCT USED FOR UNKNOWN INDICATION
     Route: 048
     Dates: start: 19940224, end: 19940316
  2. BACTRIM DS [Suspect]
     Indication: PRODUCT USED FOR UNKNOWN INDICATION
     Route: 048
     Dates: start: 19930907, end: 19940316
  3. DIFLUCAN [Suspect]
     Indication: PRODUCT USED FOR UNKNOWN INDICATION
     Route: 048
  4. NAME OF DRUG NOT LISTED PER SECRECY ACT [Suspect]
     Indication: PRODUCT USED FOR UNKNOWN INDICATION
     Route: 042
     Dates: start: 19930517, end: 19940301

REACTIONS (2)
  - DEATH [None]
  - HEPATORENAL SYNDROME [None]
